FAERS Safety Report 4880737-0 (Version None)
Quarter: 2006Q1

REPORT INFORMATION
  Report Type: 
  Country: None (occurrence: None)
  Receive Date: 20060113
  Receipt Date: 20060106
  Transmission Date: 20060701
  Serious: Yes (Hospitalization)
  Sender: FDA-Public Use
  Company Number: FR-MERCK-0601FRA00042

PATIENT
  Age: 59 Year
  Sex: Male

DRUGS (5)
  1. DICLOFENAC [Concomitant]
     Route: 048
     Dates: start: 20020904, end: 20021231
  2. VIOXX [Suspect]
     Route: 048
     Dates: end: 20030211
  3. ACETAMINOPHEN [Concomitant]
     Route: 048
     Dates: start: 20020904, end: 20021231
  4. KETOPROFEN [Concomitant]
     Route: 048
     Dates: start: 20020904, end: 20021231
  5. LEFLUNOMIDE [Suspect]
     Route: 048
     Dates: start: 20030103, end: 20030210

REACTIONS (4)
  - CARDIAC FAILURE [None]
  - COMA [None]
  - PULMONARY OEDEMA [None]
  - RENAL FAILURE [None]
